FAERS Safety Report 23200204 (Version 2)
Quarter: 2023Q4

REPORT INFORMATION
  Report Type: Report from Study
  Country: GB (occurrence: GB)
  Receive Date: 20231118
  Receipt Date: 20231220
  Transmission Date: 20240110
  Serious: Yes (Other)
  Sender: FDA-Public Use
  Company Number: GB-ALXN-A202212910

PATIENT
  Age: 61 Year
  Sex: Male

DRUGS (4)
  1. ULTOMIRIS [Suspect]
     Active Substance: RAVULIZUMAB-CWVZ
     Indication: Paroxysmal nocturnal haemoglobinuria
     Dosage: 3300 MG, Q2W
     Route: 065
     Dates: start: 20211104, end: 20211118
  2. ULTOMIRIS [Suspect]
     Active Substance: RAVULIZUMAB-CWVZ
     Dosage: 3300 MG, 8 WEEKLY
     Route: 042
     Dates: start: 20220113
  3. Covid-19 Vaccine [Concomitant]
     Indication: COVID-19 immunisation
     Dosage: UNK
     Route: 065
     Dates: start: 20230505
  4. LANSOPRAZOLE [Concomitant]
     Active Substance: LANSOPRAZOLE
     Indication: Product used for unknown indication
     Dosage: UNK
     Route: 065

REACTIONS (11)
  - Angina pectoris [Recovering/Resolving]
  - Lethargy [Not Recovered/Not Resolved]
  - Off label use [Unknown]
  - Joint dislocation [Recovering/Resolving]
  - Faeces discoloured [Unknown]
  - Haemoglobin decreased [Recovering/Resolving]
  - Body temperature increased [Recovered/Resolved]
  - Chromaturia [Unknown]
  - Dyspnoea [Not Recovered/Not Resolved]
  - Fatigue [Not Recovered/Not Resolved]
  - Arthralgia [Recovering/Resolving]

NARRATIVE: CASE EVENT DATE: 20230614
